FAERS Safety Report 18271149 (Version 1)
Quarter: 2020Q3

REPORT INFORMATION
  Report Type: Spontaneous
  Country: DE (occurrence: DE)
  Receive Date: 20200916
  Receipt Date: 20200916
  Transmission Date: 20201103
  Serious: Yes (Other)
  Sender: FDA-Public Use
  Company Number: DE-SHILPA MEDICARE LIMITED-SML-DE-2020-00266

PATIENT
  Age: 81 Year
  Sex: Male
  Weight: 80 kg

DRUGS (16)
  1. IRINOTECAN, UNKNOWN [Suspect]
     Active Substance: IRINOTECAN
     Route: 065
     Dates: start: 20200210
  2. FLUOROURACIL. [Suspect]
     Active Substance: FLUOROURACIL
     Indication: COLORECTAL CANCER METASTATIC
     Route: 040
     Dates: start: 20190327, end: 20190327
  3. VECTIBIX [Suspect]
     Active Substance: PANITUMUMAB
     Indication: COLORECTAL CANCER METASTATIC
     Route: 042
     Dates: start: 20190313, end: 20190903
  4. FLUOROURACIL. [Suspect]
     Active Substance: FLUOROURACIL
     Route: 040
     Dates: start: 20190409
  5. IRINOTECAN, UNKNOWN [Suspect]
     Active Substance: IRINOTECAN
     Indication: COLORECTAL CANCER METASTATIC
     Route: 065
     Dates: start: 20190313, end: 20190313
  6. IRINOTECAN, UNKNOWN [Suspect]
     Active Substance: IRINOTECAN
     Route: 065
     Dates: start: 20190507, end: 20190903
  7. DUODART [Concomitant]
     Active Substance: DUTASTERIDE\TAMSULOSIN
     Indication: BENIGN PROSTATIC HYPERPLASIA
     Route: 048
  8. ASS RATIOPHARM [Concomitant]
     Active Substance: ASPIRIN
     Indication: PRODUCT USED FOR UNKNOWN INDICATION
     Route: 048
  9. FOLINIC ACID [Suspect]
     Active Substance: LEUCOVORIN
     Indication: COLORECTAL CANCER METASTATIC
     Route: 065
     Dates: start: 20190313, end: 20190903
  10. IRINOTECAN, UNKNOWN [Suspect]
     Active Substance: IRINOTECAN
     Route: 065
     Dates: start: 20200127, end: 20200127
  11. FLUOROURACIL. [Suspect]
     Active Substance: FLUOROURACIL
     Route: 040
     Dates: start: 20190327, end: 20190903
  12. FLUOROURACIL. [Suspect]
     Active Substance: FLUOROURACIL
     Route: 042
     Dates: start: 20200127
  13. MINOCYCLIN RATIOPHARM [Concomitant]
     Active Substance: MINOCYCLINE HYDROCHLORIDE
     Indication: PROPHYLAXIS
     Route: 048
     Dates: start: 20190313
  14. IRINOTECAN, UNKNOWN [Suspect]
     Active Substance: IRINOTECAN
     Route: 065
     Dates: start: 20190327, end: 20190423
  15. VECTIBIX [Suspect]
     Active Substance: PANITUMUMAB
     Route: 042
     Dates: start: 20200127, end: 20200210
  16. FOLINIC ACID [Suspect]
     Active Substance: LEUCOVORIN
     Route: 065
     Dates: start: 20200127

REACTIONS (1)
  - Erythema multiforme [Recovering/Resolving]

NARRATIVE: CASE EVENT DATE: 20200616
